FAERS Safety Report 10214882 (Version 1)
Quarter: 2014Q2

REPORT INFORMATION
  Report Type: Spontaneous
  Country: US (occurrence: US)
  Receive Date: 20140603
  Receipt Date: 20140603
  Transmission Date: 20141212
  Serious: Yes (Hospitalization)
  Sender: FDA-Public Use
  Company Number: US-PFIZER INC-2014147759

PATIENT
  Age: 26 Year
  Sex: Male

DRUGS (2)
  1. LIOTHYRONINE SODIUM [Suspect]
     Indication: WEIGHT CONTROL
     Dosage: 25 UG, 1X/DAY
  2. LIOTHYRONINE SODIUM [Suspect]
     Dosage: 25 UG, 4X/DAY

REACTIONS (2)
  - Intentional overdose [Unknown]
  - Thyrotoxic periodic paralysis [Unknown]
